FAERS Safety Report 4965189-4 (Version None)
Quarter: 2006Q1

REPORT INFORMATION
  Report Type: 
  Country: None (occurrence: None)
  Receive Date: 20060207
  Receipt Date: 20050720
  Transmission Date: 20060701
  Serious: Yes (Hospitalization)
  Sender: FDA-Public Use
  Company Number: 243460

PATIENT
  Age: 25 Year
  Sex: Female
  Weight: 123.4 kg

DRUGS (6)
  1. NOVOLOG [Suspect]
     Indication: HYPERGLYCAEMIA
     Dosage: SEE IMAGE
     Dates: start: 20040601, end: 20041110
  2. NOVOLOG [Suspect]
     Indication: HYPERGLYCAEMIA
     Dosage: SEE IMAGE
     Dates: start: 20041110
  3. LEVOTHYROXINE SODIUM [Concomitant]
  4. FLUOXETINE [Concomitant]
  5. LOVASTATIN [Concomitant]
  6. MINIMED PARADIGM 511 PUMP [Concomitant]

REACTIONS (2)
  - DEHYDRATION [None]
  - HYPERGLYCAEMIA [None]
